FAERS Safety Report 15842463 (Version 1)
Quarter: 2018Q4

REPORT INFORMATION
  Report Type: Spontaneous
  Country: US (occurrence: US)
  Receive Date: 20181226
  Receipt Date: 20181226
  Transmission Date: 20190205
  Serious: No
  Sender: FDA-Public Use
  Company Number: None

PATIENT
  Age: 58 Year
  Sex: Female

DRUGS (1)
  1. ARM + HAMMER ADVANCEWHITE EXTREME WHITENING TOOTHPASTE [Suspect]
     Active Substance: SODIUM FLUORIDE

REACTIONS (6)
  - Oral discomfort [None]
  - Mouth haemorrhage [None]
  - Cheilitis [None]
  - Paraesthesia [None]
  - Product complaint [None]
  - Lip swelling [None]
